FAERS Safety Report 23144151 (Version 2)
Quarter: 2023Q4

REPORT INFORMATION
  Report Type: Spontaneous
  Country: US (occurrence: None)
  Receive Date: 20231103
  Receipt Date: 20231229
  Transmission Date: 20240110
  Serious: Yes (Hospitalization, Other)
  Sender: FDA-Public Use
  Company Number: US-FARMAPROD-202310-2984

PATIENT
  Age: 82 Year
  Sex: Male

DRUGS (13)
  1. OXERVATE [Suspect]
     Active Substance: CENEGERMIN-BKBJ
     Indication: Neurotrophic keratopathy
     Route: 047
     Dates: start: 20231005, end: 20231201
  2. POTASSIUM CHLORIDE [Concomitant]
     Active Substance: POTASSIUM CHLORIDE
  3. ENTRESTO [Concomitant]
     Active Substance: SACUBITRIL\VALSARTAN
     Dosage: 24 MG-26 MG
  4. CAROSPIR [Concomitant]
     Active Substance: SPIRONOLACTONE
     Dosage: 25 MG / 5 ML ORAL SUSPENSION
  5. PROAIR DIGIHALER [Concomitant]
     Active Substance: ALBUTEROL SULFATE
     Dosage: AEROSOL POWDER, BREATH ACTIV WITH SENSOR.
  6. TRULICITY [Concomitant]
     Active Substance: DULAGLUTIDE
     Dosage: 0.75 MG / 0.5 PEN INJECTOR.
  7. EZALLOR SPRINKLE [Concomitant]
     Active Substance: ROSUVASTATIN CALCIUM
     Dosage: SPRINKLE
  8. COLCHICINE [Concomitant]
     Active Substance: COLCHICINE
  9. ELIQUIS [Concomitant]
     Active Substance: APIXABAN
  10. FINASTERIDE [Concomitant]
     Active Substance: FINASTERIDE
  11. ALLOPURINOL [Concomitant]
     Active Substance: ALLOPURINOL
  12. KAPSPARGO [Concomitant]
     Active Substance: METOPROLOL SUCCINATE
     Dosage: FOR 24 HOURS
  13. VAZALORE [Concomitant]
     Active Substance: ASPIRIN

REACTIONS (3)
  - Sepsis [Recovering/Resolving]
  - Fall [Recovering/Resolving]
  - Wrong technique in product usage process [Unknown]

NARRATIVE: CASE EVENT DATE: 20231019
